FAERS Safety Report 7553723-X (Version None)
Quarter: 2011Q2

REPORT INFORMATION
  Report Type: 
  Country: None (occurrence: None)
  Receive Date: 20110614
  Receipt Date: 20110614
  Transmission Date: 20111010
  Serious: Yes (Other)
  Sender: FDA-Public Use
  Company Number: None

PATIENT
  Age: 49 Year
  Sex: Female
  Weight: 62.1428 kg

DRUGS (1)
  1. TIROSINT [Suspect]
     Indication: AUTOIMMUNE THYROIDITIS
     Dates: start: 20110608, end: 20110608

REACTIONS (9)
  - OESOPHAGEAL DISORDER [None]
  - STOMATITIS [None]
  - ORAL DISCOMFORT [None]
  - VAGINAL INFECTION [None]
  - SWOLLEN TONGUE [None]
  - SPEECH DISORDER [None]
  - SKIN WRINKLING [None]
  - BLISTER [None]
  - GLOSSODYNIA [None]
